FAERS Safety Report 8150255-5 (Version None)
Quarter: 2012Q1

REPORT INFORMATION
  Report Type: 
  Country: None (occurrence: None)
  Receive Date: 20120220
  Receipt Date: 20120215
  Transmission Date: 20120608
  Serious: No
  Sender: FDA-Public Use
  Company Number: US-PFIZER INC-2012041351

PATIENT
  Sex: Female
  Weight: 84 kg

DRUGS (4)
  1. PROCARDIA XL [Suspect]
     Indication: HYPERTENSION
     Dosage: 60 MG, 1X/DAY
     Route: 048
     Dates: start: 19940101
  2. MULTI-VITAMINS [Interacting]
     Indication: SUPPLEMENTATION THERAPY
     Dosage: UNK
  3. MULTI-VITAMINS [Interacting]
     Dosage: UNK
     Dates: start: 20120101, end: 20120201
  4. TRIAMTERENE [Concomitant]
     Indication: HYPERTENSION
     Dosage: UNK

REACTIONS (3)
  - DRUG INTERACTION [None]
  - PAIN [None]
  - OEDEMA PERIPHERAL [None]
